FAERS Safety Report 7345646-6 (Version None)
Quarter: 2011Q1

REPORT INFORMATION
  Report Type: 
  Country: None (occurrence: None)
  Receive Date: 20110310
  Receipt Date: 20110307
  Transmission Date: 20110831
  Serious: Yes (Disabling)
  Sender: FDA-Public Use
  Company Number: B0606944A

PATIENT
  Sex: Female
  Weight: 41 kg

DRUGS (6)
  1. TOPIRAMATE [Concomitant]
     Indication: EPILEPSY
     Dosage: 25MG PER DAY
  2. DIPIPERON [Concomitant]
     Dosage: 5UNIT TWICE PER DAY
     Route: 065
  3. MAGNE B6 [Concomitant]
  4. VIMPAT [Suspect]
     Indication: EPILEPSY
     Dosage: 10MG TWICE PER DAY
     Route: 048
     Dates: start: 20100414, end: 20100519
  5. LAMICTAL [Suspect]
     Indication: EPILEPSY
     Route: 048
  6. URBANYL [Concomitant]
     Indication: EPILEPSY
     Dosage: 5MG TWICE PER DAY
     Route: 048

REACTIONS (11)
  - PRURITUS [None]
  - FALL [None]
  - PALLOR [None]
  - EPILEPSY [None]
  - ALTERED STATE OF CONSCIOUSNESS [None]
  - TACHYCARDIA [None]
  - NAUSEA [None]
  - DRUG RESISTANCE [None]
  - ECCHYMOSIS [None]
  - RASH [None]
  - ANXIETY [None]
